FAERS Safety Report 22170791 (Version 1)
Quarter: 2023Q2

REPORT INFORMATION
  Report Type: Spontaneous
  Country: GB (occurrence: GB)
  Receive Date: 20230404
  Receipt Date: 20230404
  Transmission Date: 20230722
  Serious: Yes (Other)
  Sender: FDA-Public Use
  Company Number: GB-MHRA-MED-202303192002062800-GSJPL

PATIENT
  Age: 69 Year
  Sex: Male
  Weight: 67 kg

DRUGS (2)
  1. MOLNUPIRAVIR [Suspect]
     Active Substance: MOLNUPIRAVIR
     Indication: COVID-19 immunisation
     Dosage: 800 MILLIGRAM, BID
     Route: 048
     Dates: start: 20230317, end: 20230319
  2. LOSARTAN [Concomitant]
     Active Substance: LOSARTAN
     Indication: Hypertension
     Dosage: 50 MILLIGRAM, QD
     Dates: start: 20120401

REACTIONS (2)
  - Lip swelling [Recovering/Resolving]
  - Lip pain [Unknown]

NARRATIVE: CASE EVENT DATE: 20230318
